FAERS Safety Report 7703373-7 (Version None)
Quarter: 2011Q3

REPORT INFORMATION
  Report Type: 
  Country: None (occurrence: None)
  Receive Date: 20110823
  Receipt Date: 20110816
  Transmission Date: 20111222
  Serious: Yes (Hospitalization)
  Sender: FDA-Public Use
  Company Number: AU-B.I. PHARMACEUTICALS,INC./RIDGEFIELD-2011-AU-00903AU

PATIENT
  Sex: Female

DRUGS (7)
  1. PRADAXA [Suspect]
     Indication: ATRIAL FIBRILLATION
     Dosage: 300 MG
     Dates: start: 20110726, end: 20110819
  2. EZETIMIBE [Concomitant]
  3. LASIX [Concomitant]
  4. LIPITOR [Concomitant]
  5. NOTEN [Concomitant]
  6. PERINDOPRIL ERBUMINE [Concomitant]
  7. RABEPRAZOLE SODIUM [Concomitant]

REACTIONS (2)
  - PLEURITIC PAIN [None]
  - CHEST PAIN [None]
